FAERS Safety Report 20433405 (Version 1)
Quarter: 2022Q1

REPORT INFORMATION
  Report Type: Spontaneous
  Country: US (occurrence: US)
  Receive Date: 20220205
  Receipt Date: 20220205
  Transmission Date: 20220423
  Serious: No
  Sender: FDA-Public Use
  Company Number: US-GSKCCFUS-Case-01285381_AE-74986

PATIENT
  Age: 66 Year
  Sex: Male

DRUGS (2)
  1. NUCALA [Suspect]
     Active Substance: MEPOLIZUMAB
     Indication: Eosinophilic granulomatosis with polyangiitis
     Dosage: 100 MG, Z(EVERY MONTH)
     Route: 058
     Dates: start: 201804, end: 201810
  2. NUCALA [Suspect]
     Active Substance: MEPOLIZUMAB
     Dosage: 300 MG
     Route: 058
     Dates: start: 201811

REACTIONS (2)
  - Underdose [Unknown]
  - Lung disorder [Unknown]

NARRATIVE: CASE EVENT DATE: 20220129
